FAERS Safety Report 8990863 (Version 1)
Quarter: 2012Q4

REPORT INFORMATION
  Report Type: Spontaneous
  Country: US (occurrence: None)
  Receive Date: 20121220
  Receipt Date: 20121220
  Transmission Date: 20130627
  Serious: Yes (Disabling)
  Sender: FDA-Public Use
  Company Number: GER/UKI/12/0027087

PATIENT
  Sex: Female
  Weight: 69 kg

DRUGS (2)
  1. TERBINAFINE [Suspect]
     Indication: NAIL FUNGAL INFECTION NOS
     Route: 048
     Dates: start: 20120504, end: 20120526
  2. ASPIRIN (ACETYLSALICYLIC ACID) [Concomitant]

REACTIONS (10)
  - Malaise [None]
  - Eye disorder [None]
  - Nausea [None]
  - Alopecia [None]
  - Depression [None]
  - Lethargy [None]
  - Vertigo [None]
  - Visual impairment [None]
  - Malaise [None]
  - Anxiety [None]
